FAERS Safety Report 26022202 (Version 1)
Quarter: 2025Q4

REPORT INFORMATION
  Report Type: Spontaneous
  Country: US (occurrence: US)
  Receive Date: 20251110
  Receipt Date: 20251110
  Transmission Date: 20260118
  Serious: No
  Sender: SANOFI AVENTIS
  Company Number: US-SA-2025SA323516

PATIENT
  Sex: Female

DRUGS (11)
  1. DUPIXENT [Suspect]
     Active Substance: DUPILUMAB
     Indication: Dermatitis atopic
     Dosage: 300 MG, QOW
     Route: 058
     Dates: start: 20250107
  2. AJOVY [Concomitant]
     Active Substance: FREMANEZUMAB-VFRM
  3. AZITHROMYCIN [Concomitant]
     Active Substance: AZITHROMYCIN
  4. BACLOFEN [Concomitant]
     Active Substance: BACLOFEN
  5. BUTALBITAL AND ACETAMINOPHEN [Concomitant]
     Active Substance: ACETAMINOPHEN\BUTALBITAL
  6. CLOBETASOL [Concomitant]
     Active Substance: CLOBETASOL
  7. FAMOTIDINE [Concomitant]
     Active Substance: FAMOTIDINE
  8. GABAPENTIN [Concomitant]
     Active Substance: GABAPENTIN
  9. GABAPENTIN [Concomitant]
     Active Substance: GABAPENTIN
  10. GABAPENTIN [Concomitant]
     Active Substance: GABAPENTIN
  11. LOSARTAN POTASSIUM [Concomitant]
     Active Substance: LOSARTAN POTASSIUM

REACTIONS (1)
  - Sleep disorder due to a general medical condition [Recovering/Resolving]
